FAERS Safety Report 15705132 (Version 1)
Quarter: 2018Q4

REPORT INFORMATION
  Report Type: Spontaneous
  Country: US (occurrence: US)
  Receive Date: 20181210
  Receipt Date: 20181210
  Transmission Date: 20190205
  Serious: Yes (Other)
  Sender: FDA-Public Use
  Company Number: US-INCYTE CORPORATION-2018IN012363

PATIENT

DRUGS (2)
  1. JAKAFI [Suspect]
     Active Substance: RUXOLITINIB
     Dosage: UNK
     Route: 048
     Dates: start: 2018
  2. JAKAFI [Suspect]
     Active Substance: RUXOLITINIB
     Indication: MYELOFIBROSIS
     Dosage: 25 MG, BID
     Route: 048
     Dates: start: 201704, end: 2018

REACTIONS (8)
  - Confusional state [Unknown]
  - Haemoglobin decreased [Unknown]
  - Fatigue [Unknown]
  - Somnolence [Unknown]
  - Splenomegaly [Unknown]
  - Blood product transfusion dependent [Unknown]
  - Thinking abnormal [Unknown]
  - White blood cell count decreased [Unknown]
